FAERS Safety Report 21784815 (Version 10)
Quarter: 2025Q3

REPORT INFORMATION
  Report Type: Spontaneous
  Country: JP (occurrence: JP)
  Receive Date: 20221227
  Receipt Date: 20250818
  Transmission Date: 20251020
  Serious: Yes (Death, Hospitalization, Disabling)
  Sender: BIOGEN
  Company Number: JP-BIOGEN-2022BI01177386

PATIENT
  Age: 69 Year
  Sex: Female
  Weight: 40 kg

DRUGS (14)
  1. TYSABRI [Suspect]
     Active Substance: NATALIZUMAB
     Indication: Secondary progressive multiple sclerosis
     Route: 050
     Dates: start: 20150312, end: 20211109
  2. TYSABRI [Suspect]
     Active Substance: NATALIZUMAB
     Route: 050
     Dates: start: 20211221, end: 20221122
  3. TEGRETOL [Concomitant]
     Active Substance: CARBAMAZEPINE
     Dosage: (100) 6T/2X
     Route: 050
  4. PREDONINE [Concomitant]
     Active Substance: PREDNISOLONE
     Dosage: (5) 2T/1X IN THE MORNING
     Route: 050
  5. PREDNISOLONE [Concomitant]
     Active Substance: PREDNISOLONE
     Dosage: (1) 1T/1X IN THE MORNING
     Route: 050
  6. VONOPRAZAN FUMARATE [Concomitant]
     Active Substance: VONOPRAZAN FUMARATE
     Dosage: (20) 1T/1X
     Route: 050
  7. AZATHIOPRINE [Concomitant]
     Active Substance: AZATHIOPRINE
     Dosage: (50) 3T/1X IN THE MORNING
     Route: 050
  8. EDOXABAN TOSYLATE [Concomitant]
     Active Substance: EDOXABAN TOSYLATE
     Dosage: (30) 1T/1X IN THE MORNING
     Route: 050
  9. ZINC [Concomitant]
     Active Substance: ZINC
     Dosage: (50) 2T/2X
     Route: 050
  10. ITRACONAZOLE [Concomitant]
     Active Substance: ITRACONAZOLE
     Dosage: (50) 2C/2X
     Route: 050
  11. TANDOSPIRONE [Concomitant]
     Active Substance: TANDOSPIRONE
     Dosage: (10) 3T/3X
     Route: 050
  12. LIORESAL [Concomitant]
     Active Substance: BACLOFEN
     Dosage: (5) 3T/3X
     Route: 050
  13. PREDNISOLONE [Concomitant]
     Active Substance: PREDNISOLONE
     Indication: Pemphigoid
     Route: 050
     Dates: start: 20190523, end: 20230114
  14. SPIRONOLACTONE [Concomitant]
     Active Substance: SPIRONOLACTONE
     Dosage: (25) 2T/2X
     Route: 050

REACTIONS (6)
  - Progressive multifocal leukoencephalopathy [Not Recovered/Not Resolved]
  - Myelodysplastic syndrome [Fatal]
  - Pancytopenia [Fatal]
  - Gastrointestinal haemorrhage [Fatal]
  - Shock [Fatal]
  - Prescribed underdose [Unknown]

NARRATIVE: CASE EVENT DATE: 20221001
